FAERS Safety Report 4796682-5 (Version None)
Quarter: 2005Q4

REPORT INFORMATION
  Report Type: 
  Country: None (occurrence: None)
  Receive Date: 20051007
  Receipt Date: 20050927
  Transmission Date: 20060501
  Serious: Yes (Hospitalization)
  Sender: FDA-Public Use
  Company Number: 2005068057

PATIENT
  Age: 66 Year
  Sex: Female

DRUGS (3)
  1. CARDURA [Suspect]
     Indication: HYPERTENSION
     Dosage: 2 MG (2 MG, QD), ORAL
     Route: 048
     Dates: start: 19990901
  2. ENALAPRIL MALEATE [Concomitant]
  3. TENORETIC 100 [Concomitant]

REACTIONS (2)
  - CONSTIPATION [None]
  - HAEMORRHOIDS [None]
